FAERS Safety Report 19064337 (Version 1)
Quarter: 2021Q1

REPORT INFORMATION
  Report Type: Spontaneous
  Country: RO (occurrence: RO)
  Receive Date: 20210326
  Receipt Date: 20210326
  Transmission Date: 20210420
  Serious: Yes (Death, Hospitalization, Other)
  Sender: FDA-Public Use
  Company Number: RO-ABBVIE-21K-135-3834224-00

PATIENT
  Age: 65 Year
  Sex: Male

DRUGS (4)
  1. RITUXIMAB. [Concomitant]
     Active Substance: RITUXIMAB
     Indication: CHRONIC LYMPHOCYTIC LEUKAEMIA
     Dates: start: 202002
  2. VENCLYXTO [Suspect]
     Active Substance: VENETOCLAX
     Indication: CHRONIC LYMPHOCYTIC LEUKAEMIA
     Route: 048
     Dates: start: 202002, end: 202103
  3. CARBAPENEMS [Concomitant]
     Active Substance: UNSPECIFIED INGREDIENT
     Indication: PRODUCT USED FOR UNKNOWN INDICATION
  4. VFEND [Concomitant]
     Active Substance: VORICONAZOLE
     Indication: PRODUCT USED FOR UNKNOWN INDICATION

REACTIONS (4)
  - Cytopenia [Fatal]
  - Acute myocardial infarction [Fatal]
  - Pneumonia [Fatal]
  - Acute leukaemia [Fatal]

NARRATIVE: CASE EVENT DATE: 202102
